FAERS Safety Report 16976515 (Version 4)
Quarter: 2019Q4

REPORT INFORMATION
  Report Type: Spontaneous
  Country: DE (occurrence: DE)
  Receive Date: 20191030
  Receipt Date: 20191202
  Transmission Date: 20200122
  Serious: Yes (Hospitalization, Other)
  Sender: FDA-Public Use
  Company Number: DE-GILEAD-2019-0434826

PATIENT
  Age: 44 Year
  Sex: Female
  Weight: 60 kg

DRUGS (10)
  1. VITAMIN D [VITAMIN D NOS] [Concomitant]
     Active Substance: VITAMIN D NOS
  2. MULTIBIONTA MINERAL [Concomitant]
  3. VITAMIN B12 [VITAMIN B12 NOS] [Concomitant]
     Active Substance: CYANOCOBALAMIN
  4. EVIPLERA [Suspect]
     Active Substance: EMTRICITABINE\RILPIVIRINE\TENOFOVIR DISOPROXIL FUMARATE
     Indication: HIV INFECTION
     Dosage: UNK
     Route: 048
     Dates: start: 20120807, end: 201811
  5. ESCITALOPRAM [Concomitant]
     Active Substance: ESCITALOPRAM OXALATE
  6. FOLSAN [Concomitant]
     Active Substance: FOLIC ACID
  7. DEKRISTOL [Concomitant]
     Active Substance: CHOLECALCIFEROL
  8. XERISTAR [Concomitant]
     Active Substance: DULOXETINE HYDROCHLORIDE
     Indication: DEPRESSION
     Dosage: 30 MG, UNK
     Route: 048
  9. ZINC OROTATE [Concomitant]
     Active Substance: ZINC OROTATE
  10. LASEA [Concomitant]

REACTIONS (5)
  - Musculoskeletal disorder [Unknown]
  - Drug ineffective [Unknown]
  - Depression [Recovered/Resolved]
  - Malaise [Unknown]
  - Viral load increased [Unknown]

NARRATIVE: CASE EVENT DATE: 201810
